FAERS Safety Report 6003265-8 (Version None)
Quarter: 2008Q4

REPORT INFORMATION
  Report Type: 
  Country: None (occurrence: None)
  Receive Date: 20081216
  Receipt Date: 20081205
  Transmission Date: 20090506
  Serious: Yes (Hospitalization, Other)
  Sender: FDA-Public Use
  Company Number: US-CELGENEUS-163-21880-08120530

PATIENT
  Sex: Male

DRUGS (1)
  1. REVLIMID [Suspect]
     Indication: MULTIPLE MYELOMA
     Route: 048
     Dates: start: 20080717

REACTIONS (10)
  - ABDOMINAL DISCOMFORT [None]
  - BACK PAIN [None]
  - CHEST PAIN [None]
  - CHILLS [None]
  - DECREASED APPETITE [None]
  - HEART RATE IRREGULAR [None]
  - HYPERHIDROSIS [None]
  - RASH [None]
  - SCLERITIS [None]
  - VISION BLURRED [None]
